FAERS Safety Report 20471648 (Version 1)
Quarter: 2022Q1

REPORT INFORMATION
  Report Type: Spontaneous
  Country: JP (occurrence: JP)
  Receive Date: 20220214
  Receipt Date: 20220214
  Transmission Date: 20220424
  Serious: Yes (Other)
  Sender: FDA-Public Use
  Company Number: JP-PFIZER INC-202200180135

PATIENT
  Age: 44 Year
  Sex: Female

DRUGS (6)
  1. PACLITAXEL [Suspect]
     Active Substance: PACLITAXEL
     Indication: Breast cancer metastatic
     Dosage: 90 MG/M2 ON DAYS 1, 8, AND 15 OF A 4 WEEK CYCLE
  2. BEVACIZUMAB [Suspect]
     Active Substance: BEVACIZUMAB
     Indication: Breast cancer metastatic
     Dosage: 10 MG/KG ON DAYS 1 AND 15 OF A 4-WEEK CYCLE
  3. NIVOLUMAB [Suspect]
     Active Substance: NIVOLUMAB
     Indication: Breast cancer metastatic
     Dosage: 3 MG/KG ON DAYS 1 AND 15 OF A 4-WEEK CYCLE)
  4. AMIKACIN [Concomitant]
     Active Substance: AMIKACIN
     Indication: Device related infection
  5. MEROPENEM [Concomitant]
     Active Substance: MEROPENEM
     Indication: Device related infection
  6. CIPROFLOXACIN [Concomitant]
     Active Substance: CIPROFLOXACIN
     Indication: Device related infection

REACTIONS (1)
  - Neuropathy peripheral [Unknown]
